FAERS Safety Report 23748018 (Version 1)
Quarter: 2024Q2

REPORT INFORMATION
  Report Type: Report from Study
  Country: CA (occurrence: CA)
  Receive Date: 20240416
  Receipt Date: 20240416
  Transmission Date: 20240715
  Serious: Yes (Death)
  Sender: FDA-Public Use
  Company Number: CA-CHIESI-2024CHF02090

PATIENT
  Sex: Male
  Weight: 66 kg

DRUGS (1)
  1. DEFERIPRONE [Suspect]
     Active Substance: DEFERIPRONE
     Indication: Myelodysplastic syndrome
     Dosage: 1000 MILLIGRAM, TID
     Route: 048
     Dates: start: 20240311

REACTIONS (1)
  - Death [Fatal]
